FAERS Safety Report 25486670 (Version 1)
Quarter: 2025Q2

REPORT INFORMATION
  Report Type: Spontaneous
  Country: CN (occurrence: CN)
  Receive Date: 20250627
  Receipt Date: 20250627
  Transmission Date: 20250717
  Serious: Yes (Hospitalization, Other)
  Sender: ASTELLAS
  Company Number: CN-GILEAD-2025-0718331

PATIENT
  Age: 13 Year
  Sex: Female
  Weight: 44.5 kg

DRUGS (2)
  1. AMPHOTERICIN B [Suspect]
     Active Substance: AMPHOTERICIN B
     Indication: Myelosuppression
     Dosage: 100 MG, QD
     Route: 042
     Dates: start: 20250615, end: 20250615
  2. DEXTROSE [Concomitant]
     Active Substance: DEXTROSE MONOHYDRATE
     Indication: Myelosuppression
     Dosage: 250 ML, QD
     Route: 042
     Dates: start: 20250615, end: 20250615

REACTIONS (1)
  - Shock [Recovering/Resolving]

NARRATIVE: CASE EVENT DATE: 20250616
